FAERS Safety Report 13367717 (Version 1)
Quarter: 2017Q1

REPORT INFORMATION
  Report Type: Spontaneous
  Country: US (occurrence: US)
  Receive Date: 20170324
  Receipt Date: 20170324
  Transmission Date: 20170429
  Serious: No
  Sender: FDA-Public Use
  Company Number: US-009507513-1702USA011253

PATIENT
  Age: 26 Year
  Sex: Female

DRUGS (4)
  1. LOTRISONE [Suspect]
     Active Substance: BETAMETHASONE DIPROPIONATE\CLOTRIMAZOLE
     Indication: MASS
  2. TRIAMCINOLONE [Concomitant]
     Active Substance: TRIAMCINOLONE
  3. ALOE VERA [Concomitant]
     Active Substance: ALOE VERA LEAF
  4. BACITRACIN. [Concomitant]
     Active Substance: BACITRACIN

REACTIONS (1)
  - Drug ineffective [Unknown]
